FAERS Safety Report 6003503-1 (Version None)
Quarter: 2008Q4

REPORT INFORMATION
  Report Type: 
  Country: None (occurrence: None)
  Receive Date: 20081216
  Receipt Date: 20081211
  Transmission Date: 20090506
  Serious: Yes (Other)
  Sender: FDA-Public Use
  Company Number: FR-BRISTOL-MYERS SQUIBB COMPANY-14441489

PATIENT
  Age: 71 Year
  Sex: Male

DRUGS (7)
  1. PRAVASTATIN SODIUM [Suspect]
  2. NON-MEDICINAL PRODUCT [Interacting]
     Dates: start: 20060701
  3. HYDROCORTISONE [Concomitant]
     Dates: start: 20040701
  4. CLOPIDOGREL BISULFATE [Concomitant]
     Dates: start: 20040701
  5. CANDESARTAN [Concomitant]
     Dates: start: 20040701
  6. GLYBURIDE [Concomitant]
     Dates: start: 20040701
  7. HYDROCHLOROTHIAZIDE [Concomitant]
     Dates: start: 20040601

REACTIONS (3)
  - FOOD INTERACTION [None]
  - MUSCLE SPASMS [None]
  - MYALGIA [None]
